FAERS Safety Report 21082622 (Version 12)
Quarter: 2022Q4

REPORT INFORMATION
  Report Type: Report from Study
  Country: TR (occurrence: None)
  Receive Date: 20220714
  Receipt Date: 20221121
  Transmission Date: 20230112
  Serious: Yes (Hospitalization)
  Sender: FDA-Public Use
  Company Number: TR-ROCHE-3136297

PATIENT
  Age: 69 Year
  Sex: Female
  Weight: 92 kg

DRUGS (42)
  1. ATEZOLIZUMAB [Suspect]
     Active Substance: ATEZOLIZUMAB
     Indication: Malignant peritoneal neoplasm
     Dosage: DOSE LAST STUDY DRUG ADMIN PRIOR AE IS 1200 MG?ON 20/JUN/2022 (12:40 PM TO 1:10 PM), 19/JUL/2022 (10
     Route: 042
     Dates: start: 20220318
  2. BEVACIZUMAB [Suspect]
     Active Substance: BEVACIZUMAB
     Indication: Malignant peritoneal neoplasm
     Dosage: LAST DOSE OF BEVACIZUMAB ADMINISTERED PRIOR TO AE AND SAE IS 1425 MG.?ON 19/JUL/2022 (11:35 AM TO 12
     Route: 042
     Dates: start: 20220318
  3. PANTO (TURKEY) [Concomitant]
     Route: 048
     Dates: start: 2010
  4. NEURONTIN [Concomitant]
     Active Substance: GABAPENTIN
     Indication: Diabetic neuropathy
     Route: 048
     Dates: start: 20210807
  5. METFORMIN HYDROCHLORIDE [Concomitant]
     Active Substance: METFORMIN HYDROCHLORIDE
     Indication: Type 2 diabetes mellitus
     Route: 048
     Dates: start: 2009
  6. ASPIRIN [Concomitant]
     Active Substance: ASPIRIN
     Route: 048
  7. ZEDPREX [Concomitant]
     Indication: Depression
     Route: 048
     Dates: start: 2003
  8. SERETIDE [Concomitant]
     Active Substance: FLUTICASONE PROPIONATE\SALMETEROL XINAFOATE
     Indication: Asthma
     Route: 048
     Dates: start: 20210517
  9. SERETIDE [Concomitant]
     Active Substance: FLUTICASONE PROPIONATE\SALMETEROL XINAFOATE
     Route: 048
     Dates: start: 2009
  10. CALCIMAX D3 [Concomitant]
     Route: 048
  11. MAGNEZINC [Concomitant]
     Route: 048
  12. BENEXOL B12 (TURKEY) [Concomitant]
     Route: 048
  13. CANDEXIL PLUS [Concomitant]
     Indication: Hypertension
     Route: 048
     Dates: start: 20191213
  14. XANAX [Concomitant]
     Active Substance: ALPRAZOLAM
     Indication: Depression
     Route: 048
     Dates: start: 2021
  15. OLANZAPINE [Concomitant]
     Active Substance: OLANZAPINE
     Indication: Sleep disorder
     Route: 048
     Dates: start: 20210701
  16. NORM ASIDOZ [Concomitant]
     Indication: Blood creatinine increased
     Route: 048
     Dates: start: 20220411
  17. ALDINE (TURKEY) [Concomitant]
     Route: 042
     Dates: start: 20220708, end: 20220713
  18. ALDINE (TURKEY) [Concomitant]
     Route: 042
     Dates: start: 20220818, end: 20220919
  19. BALABAN [Concomitant]
     Indication: Antibiotic therapy
     Route: 062
     Dates: start: 20220708, end: 20220713
  20. ASPIRIN [Concomitant]
     Active Substance: ASPIRIN
     Dosage: GIVEN FOR PROPHYLAXIS: YES
     Route: 048
     Dates: start: 20220708, end: 20220713
  21. ASPIRIN [Concomitant]
     Active Substance: ASPIRIN
     Route: 048
     Dates: start: 20220709, end: 20220713
  22. MAGNEZINC [Concomitant]
     Route: 048
     Dates: start: 20220708, end: 20220713
  23. NEOSET (TURKEY) [Concomitant]
     Route: 042
     Dates: start: 20220708, end: 20220713
  24. DILTIAZEM [Concomitant]
     Active Substance: DILTIAZEM
     Indication: Hypertension
     Route: 048
     Dates: start: 20180409
  25. METADEM [Concomitant]
     Route: 042
     Dates: start: 20220708, end: 20220708
  26. OKSAPAR [Concomitant]
     Route: 058
     Dates: start: 20220708, end: 20220708
  27. PAROL PLUS (TURKEY) [Concomitant]
     Route: 042
     Dates: start: 20220708, end: 20220713
  28. PROGAS [Concomitant]
     Route: 042
     Dates: start: 20220708, end: 20220709
  29. LINAGLIPTIN [Concomitant]
     Active Substance: LINAGLIPTIN
     Indication: Type 2 diabetes mellitus
     Route: 048
     Dates: start: 20220708, end: 20220713
  30. NASTIFRAN [Concomitant]
     Route: 058
     Dates: start: 20220709, end: 20220709
  31. DESAL (TURKEY) [Concomitant]
     Route: 042
     Dates: start: 20220710, end: 20220713
  32. LERCANIDIPINE HYDROCHLORIDE [Concomitant]
     Active Substance: LERCANIDIPINE HYDROCHLORIDE
     Indication: Hypertension
     Route: 048
     Dates: start: 20220818, end: 20220919
  33. ALDOLAN [Concomitant]
     Route: 058
     Dates: start: 20220818, end: 20220919
  34. ACMEL [Concomitant]
     Route: 042
     Dates: start: 20220818, end: 20220919
  35. ASPIRIN [Concomitant]
     Active Substance: ASPIRIN
     Route: 048
     Dates: start: 20220819, end: 20220919
  36. NATRON [Concomitant]
     Route: 042
     Dates: start: 20220819, end: 20220919
  37. MOTILIUM [Concomitant]
     Active Substance: DOMPERIDONE
     Indication: Nausea
     Route: 048
     Dates: start: 20220819, end: 20220919
  38. PANTACTIVE [Concomitant]
     Route: 048
     Dates: start: 20220819, end: 20220919
  39. PHENIRAMINE [Concomitant]
     Active Substance: PHENIRAMINE
     Route: 042
     Dates: start: 20220820, end: 20220919
  40. FLAGYL [Concomitant]
     Active Substance: METRONIDAZOLE\METRONIDAZOLE HYDROCHLORIDE
     Route: 048
     Dates: start: 20220830, end: 20220919
  41. LASIX [Concomitant]
     Active Substance: FUROSEMIDE
     Route: 042
     Dates: start: 20220830, end: 20220830
  42. MEKINIST [Concomitant]
     Active Substance: TRAMETINIB DIMETHYL SULFOXIDE
     Dates: start: 20221025, end: 20221027

REACTIONS (1)
  - Electrolyte imbalance [Not Recovered/Not Resolved]

NARRATIVE: CASE EVENT DATE: 20220708
